FAERS Safety Report 5792889-9 (Version None)
Quarter: 2008Q2

REPORT INFORMATION
  Report Type: 
  Country: None (occurrence: None)
  Receive Date: 20080626
  Receipt Date: 20080626
  Transmission Date: 20081010
  Serious: No
  Sender: FDA-Public Use
  Company Number: None

PATIENT
  Age: 51 Year
  Sex: Male
  Weight: 97.478 kg

DRUGS (1)
  1. ERBITUX [Suspect]
     Indication: TONSIL CANCER
     Dosage: 100MG IVSS

REACTIONS (3)
  - BLOOD PRESSURE DECREASED [None]
  - NAUSEA [None]
  - OXYGEN SATURATION DECREASED [None]
